FAERS Safety Report 19182897 (Version 2)
Quarter: 2021Q2

REPORT INFORMATION
  Report Type: Report from Study
  Country: US (occurrence: US)
  Receive Date: 20210426
  Receipt Date: 20210506
  Transmission Date: 20210717
  Serious: Yes (Hospitalization)
  Sender: FDA-Public Use
  Company Number: US-ROCHE-2814922

PATIENT
  Age: 33 Year
  Sex: Female
  Weight: 84.6 kg

DRUGS (2)
  1. RO7198457 (RNA PERSONALISED CANCER VACCINE) [Suspect]
     Active Substance: AUTOGENE CEVUMERAN
     Indication: METASTATIC NEOPLASM
     Dosage: START DATE OF MOST RECENT DOSE OF STUDY DRUG RO7198457 PRIOR TO AE: 13/APR/2021
     Route: 042
     Dates: start: 20210413
  2. ATEZOLIZUMAB. [Suspect]
     Active Substance: ATEZOLIZUMAB
     Indication: METASTATIC NEOPLASM
     Dosage: START DATE OF MOST RECENT DOSE 1200 MG OF STUDY DRUG ATEZOLIZUMAB PRIOR TO SAE: 13/APR/2021
     Route: 041
     Dates: start: 20210413

REACTIONS (1)
  - Vomiting [Not Recovered/Not Resolved]

NARRATIVE: CASE EVENT DATE: 20210415
